FAERS Safety Report 22204453 (Version 1)
Quarter: 2023Q2

REPORT INFORMATION
  Report Type: Spontaneous
  Country: US (occurrence: US)
  Receive Date: 20230413
  Receipt Date: 20230413
  Transmission Date: 20230722
  Serious: No
  Sender: FDA-Public Use
  Company Number: None

PATIENT
  Sex: Female

DRUGS (1)
  1. TENORMIN [Suspect]
     Active Substance: ATENOLOL
     Indication: Product used for unknown indication
     Dosage: STRENGTH: 50 MG

REACTIONS (4)
  - Abdominal discomfort [Unknown]
  - Chest discomfort [Unknown]
  - Discomfort [Unknown]
  - Product availability issue [Unknown]
